FAERS Safety Report 4788716-9 (Version None)
Quarter: 2005Q4

REPORT INFORMATION
  Report Type: 
  Country: None (occurrence: None)
  Receive Date: 20051005
  Receipt Date: 20050524
  Transmission Date: 20060501
  Serious: Yes (Hospitalization)
  Sender: FDA-Public Use
  Company Number: US-ROCHE-405530

PATIENT
  Age: 52 Year
  Sex: Male
  Weight: 99.6 kg

DRUGS (6)
  1. PEG-INTERFERON ALFA 2A (RO 25-8310) [Suspect]
     Indication: HEPATITIS C
     Route: 058
     Dates: start: 20050225
  2. RIBAVIRIN [Suspect]
     Indication: HEPATITIS C
     Route: 048
     Dates: start: 20050225
  3. PLACEBO [Suspect]
     Indication: HEPATITIS C
     Route: 048
     Dates: start: 20050225
  4. WELLBUTRIN [Concomitant]
     Indication: DEPRESSION
     Dosage: AT BEDTIME.
     Route: 048
     Dates: start: 20050225
  5. AMBIEN [Concomitant]
     Indication: INSOMNIA
     Route: 048
     Dates: start: 20050225
  6. ZITHROMAX [Concomitant]
     Indication: PNEUMONIA
     Dates: start: 20050515

REACTIONS (2)
  - NEPHROLITHIASIS [None]
  - PNEUMONIA [None]
